FAERS Safety Report 9225721 (Version 1)
Quarter: 2013Q2

REPORT INFORMATION
  Report Type: Spontaneous
  Country: US (occurrence: US)
  Receive Date: 20130411
  Receipt Date: 20130411
  Transmission Date: 20140414
  Serious: Yes (Other)
  Sender: FDA-Public Use
  Company Number: US-BAYER-2013-045645

PATIENT
  Sex: Female

DRUGS (1)
  1. MIRENA [Suspect]
     Dosage: 20 MCG/24HR, CONT
     Route: 015
     Dates: start: 20130315

REACTIONS (4)
  - Post procedural haemorrhage [Not Recovered/Not Resolved]
  - Fatigue [None]
  - Asthenia [None]
  - Abdominal pain upper [None]
